FAERS Safety Report 17897388 (Version 4)
Quarter: 2020Q4

REPORT INFORMATION
  Report Type: Report from Study
  Country: None (occurrence: US)
  Receive Date: 20200616
  Receipt Date: 20201211
  Transmission Date: 20210113
  Serious: Yes (Other)
  Sender: FDA-Public Use
  Company Number: US-ABBVIE-20K-163-3428604-00

PATIENT
  Age: 59 Year
  Sex: Male
  Weight: 86.26 kg

DRUGS (2)
  1. HUMIRA [Suspect]
     Active Substance: ADALIMUMAB
     Route: 058
     Dates: start: 2020
  2. HUMIRA [Suspect]
     Active Substance: ADALIMUMAB
     Indication: CROHN^S DISEASE
     Route: 058
     Dates: end: 2020

REACTIONS (19)
  - Large intestine polyp [Not Recovered/Not Resolved]
  - Depressed mood [Not Recovered/Not Resolved]
  - Haemorrhoids [Unknown]
  - Bone swelling [Unknown]
  - Unevaluable event [Not Recovered/Not Resolved]
  - Memory impairment [Unknown]
  - Arthropathy [Unknown]
  - Cholecystectomy [Unknown]
  - Hernia [Not Recovered/Not Resolved]
  - Injection site mass [Unknown]
  - Wound [Unknown]
  - Gout [Unknown]
  - Dehydration [Not Recovered/Not Resolved]
  - Crohn^s disease [Not Recovered/Not Resolved]
  - Constipation [Not Recovered/Not Resolved]
  - Device issue [Not Recovered/Not Resolved]
  - Precancerous cells present [Recovering/Resolving]
  - Renal disorder [Unknown]
  - Fatigue [Unknown]

NARRATIVE: CASE EVENT DATE: 2020
